FAERS Safety Report 23347195 (Version 1)
Quarter: 2023Q4

REPORT INFORMATION
  Report Type: Spontaneous
  Country: US (occurrence: US)
  Receive Date: 20231228
  Receipt Date: 20231228
  Transmission Date: 20240110
  Serious: Yes (Hospitalization)
  Sender: FDA-Public Use
  Company Number: US-CMP PHARMA-2023CMP00082

PATIENT
  Age: 73 Year
  Sex: Male

DRUGS (10)
  1. HYDROCORTISONE [Suspect]
     Active Substance: HYDROCORTISONE
     Indication: Hypopituitarism
     Dosage: 15 MG IN THE MORNING AND 5 MG IN THE EVENING
  2. HYDROCORTISONE [Suspect]
     Active Substance: HYDROCORTISONE
     Dosage: ATTEMPTS AT INCREASING THE DOSE
  3. HYDROCORTISONE [Suspect]
     Active Substance: HYDROCORTISONE
     Dosage: 40 MG IN THE MORNING AND 40 MG IN THE EVENING
  4. RIFAMPIN [Suspect]
     Active Substance: RIFAMPIN
     Indication: Tuberculosis
     Dosage: UNK
  5. LEVOTHYROXINE [Concomitant]
     Active Substance: LEVOTHYROXINE
  6. TESTOSTERONE [Concomitant]
     Active Substance: TESTOSTERONE
  7. DESMOPRESSIN [Concomitant]
     Active Substance: DESMOPRESSIN
  8. ISONIAZID [Concomitant]
     Active Substance: ISONIAZID
  9. PYRAZINAMIDE [Concomitant]
     Active Substance: PYRAZINAMIDE
  10. ETHAMBUTOL [Concomitant]
     Active Substance: ETHAMBUTOL HYDROCHLORIDE

REACTIONS (2)
  - Drug interaction [Not Recovered/Not Resolved]
  - Adrenocortical insufficiency acute [Recovered/Resolved]
